FAERS Safety Report 13356621 (Version 1)
Quarter: 2017Q1

REPORT INFORMATION
  Report Type: Spontaneous
  Country: GB (occurrence: GB)
  Receive Date: 20170321
  Receipt Date: 20170321
  Transmission Date: 20170429
  Serious: Yes (Life-Threatening, Hospitalization, Other)
  Sender: FDA-Public Use
  Company Number: GB-PFIZER INC-2017115537

PATIENT
  Age: 46 Year
  Sex: Male
  Weight: 63.4 kg

DRUGS (4)
  1. VENLAFAXINE HCL [Suspect]
     Active Substance: VENLAFAXINE HYDROCHLORIDE
     Dosage: 150 MG, 1X/DAY EACH MORNING
     Route: 048
     Dates: end: 20170223
  2. QUETIAPINE. [Suspect]
     Active Substance: QUETIAPINE
     Indication: DEPRESSION
     Dosage: 300 MG, 1X/DAY AT NIGHT
     Route: 048
     Dates: end: 20170223
  3. NIQUITIN [Concomitant]
     Active Substance: NICOTINE
     Dosage: 14 MG, UNK
  4. VENLAFAXINE HCL [Suspect]
     Active Substance: VENLAFAXINE HYDROCHLORIDE
     Indication: DEPRESSION
     Dosage: 37.5 MG, 2X/DAY
     Route: 048
     Dates: end: 20170222

REACTIONS (7)
  - Hypothermia [Unknown]
  - Pain in extremity [Unknown]
  - Condition aggravated [Unknown]
  - Myoclonic epilepsy [Recovering/Resolving]
  - Blood sodium decreased [Unknown]
  - Incontinence [Unknown]
  - Dyspnoea [Unknown]

NARRATIVE: CASE EVENT DATE: 20170216
